FAERS Safety Report 8834664 (Version 1)
Quarter: 2012Q4

REPORT INFORMATION
  Report Type: 
  Country: US (occurrence: US)
  Receive Date: 20121010
  Receipt Date: 20121010
  Transmission Date: 20130627
  Serious: Yes (Death, Hospitalization, Other)
  Sender: FDA-Public Use
  Company Number: US-ROCHE-1123477

PATIENT
  Age: 74 None
  Sex: Male

DRUGS (1)
  1. RITUXAN [Suspect]
     Indication: HAIRY CELL LEUKAEMIA
     Dosage: unknown
     Route: 065

REACTIONS (11)
  - Death [Fatal]
  - Febrile neutropenia [Recovered/Resolved]
  - Lymphadenopathy [Recovering/Resolving]
  - Leukaemia recurrent [Unknown]
  - Back pain [Recovered/Resolved]
  - Musculoskeletal pain [Recovered/Resolved]
  - Chills [Unknown]
  - Chills [Unknown]
  - Bone pain [Unknown]
  - Anaemia [Unknown]
  - Weight decreased [Recovering/Resolving]
